FAERS Safety Report 22135204 (Version 1)
Quarter: 2023Q1

REPORT INFORMATION
  Report Type: Spontaneous
  Country: CA (occurrence: CA)
  Receive Date: 20230324
  Receipt Date: 20230324
  Transmission Date: 20230418
  Serious: Yes (Other)
  Sender: FDA-Public Use
  Company Number: CA-TAKEDA-2023TUS027799

PATIENT
  Age: 49 Year
  Sex: Female

DRUGS (12)
  1. HUMAN C1-ESTERASE INHIBITOR [Suspect]
     Active Substance: HUMAN C1-ESTERASE INHIBITOR
     Indication: Hereditary angioedema
     Dosage: UNK
     Route: 058
  2. HUMAN C1-ESTERASE INHIBITOR [Suspect]
     Active Substance: HUMAN C1-ESTERASE INHIBITOR
     Indication: Hereditary angioedema
     Dosage: UNK
     Route: 058
  3. HUMAN C1-ESTERASE INHIBITOR [Suspect]
     Active Substance: HUMAN C1-ESTERASE INHIBITOR
     Indication: Hereditary angioedema
     Dosage: UNK
     Route: 058
  4. BERINERT [Suspect]
     Active Substance: HUMAN C1-ESTERASE INHIBITOR
     Indication: Hereditary angioedema
     Dosage: UNK
     Route: 042
  5. ACETAMINOPHEN [Concomitant]
     Active Substance: ACETAMINOPHEN
  6. ATIVAN [Concomitant]
     Active Substance: LORAZEPAM
  7. ICATIBANT ACETATE [Concomitant]
     Active Substance: ICATIBANT ACETATE
  8. LANADELUMAB [Concomitant]
     Active Substance: LANADELUMAB
  9. ONDANSETRON [Concomitant]
     Active Substance: ONDANSETRON
  10. OTEZLA [Concomitant]
     Active Substance: APREMILAST
  11. SILDENAFIL [Concomitant]
     Active Substance: SILDENAFIL
  12. AMLODIPINE BESYLATE [Concomitant]
     Active Substance: AMLODIPINE BESYLATE

REACTIONS (17)
  - Allergy to animal [Unknown]
  - Allergy to arthropod bite [Unknown]
  - Allergy to sting [Unknown]
  - Depression [Unknown]
  - Drug hypersensitivity [Unknown]
  - Inflammatory bowel disease [Unknown]
  - Mite allergy [Unknown]
  - Mixed connective tissue disease [Unknown]
  - Osteoporosis [Unknown]
  - Psoriasis [Unknown]
  - Raynaud^s phenomenon [Unknown]
  - Rhinitis allergic [Unknown]
  - Rubber sensitivity [Unknown]
  - Seasonal allergy [Unknown]
  - Gait disturbance [Unknown]
  - Hypertension [Unknown]
  - Pulmonary embolism [Unknown]
